FAERS Safety Report 21796297 (Version 1)
Quarter: 2022Q4

REPORT INFORMATION
  Report Type: Report from Study
  Country: TW (occurrence: TW)
  Receive Date: 20221229
  Receipt Date: 20221229
  Transmission Date: 20230112
  Serious: Yes (Hospitalization, Other)
  Sender: FDA-Public Use
  Company Number: TW-BoehringerIngelheim-2022-BI-205764

PATIENT
  Age: 59 Year
  Sex: Male
  Weight: 51 kg

DRUGS (7)
  1. AFATINIB [Suspect]
     Active Substance: AFATINIB
     Indication: Oesophageal squamous cell carcinoma
     Route: 048
     Dates: start: 20221110, end: 20221125
  2. INVESTIGATIONAL PRODUCT [Suspect]
     Active Substance: INVESTIGATIONAL PRODUCT
     Indication: Oesophageal squamous cell carcinoma
     Route: 042
     Dates: start: 20221110, end: 20221110
  3. OxyNorm IR Cap 5mg [Concomitant]
     Indication: Pain
     Dosage: PRN (AS NECESSARY)
     Route: 048
     Dates: start: 20221020
  4. Allegra tab 60 mg [Concomitant]
     Indication: Pruritus
     Route: 048
     Dates: start: 20221102
  5. Benda [Concomitant]
     Indication: Pruritus
     Dosage: QN
     Route: 048
     Dates: start: 20221110
  6. CELEBREX [Concomitant]
     Active Substance: CELECOXIB
     Indication: Pain
     Route: 048
     Dates: start: 20221020
  7. FENTANYL [Concomitant]
     Active Substance: FENTANYL
     Indication: Pain
     Dosage: 25 MICROGRAM/HOUR STRENGTH?ROUTE: SKIN
     Dates: start: 20221102

REACTIONS (1)
  - Oesophageal fistula [Recovered/Resolved]

NARRATIVE: CASE EVENT DATE: 20221129
